FAERS Safety Report 5289056-4 (Version None)
Quarter: 2007Q1

REPORT INFORMATION
  Report Type: 
  Country: None (occurrence: None)
  Receive Date: 20070118
  Receipt Date: 20061121
  Transmission Date: 20070707
  Serious: Yes (Other)
  Sender: FDA-Public Use
  Company Number: HQWYE422227NOV06

PATIENT
  Age: 80 Year
  Sex: Female
  Weight: 59.02 kg

DRUGS (1)
  1. ADVIL PM [Suspect]
     Indication: INSOMNIA
     Dosage: 3 CAPLETS, 1 TIME, ORAL
     Route: 048
     Dates: start: 20061119, end: 20061119

REACTIONS (3)
  - ASTHENIA [None]
  - DIZZINESS [None]
  - OVERDOSE [None]
